FAERS Safety Report 7503688-1 (Version None)
Quarter: 2011Q2

REPORT INFORMATION
  Report Type: 
  Country: None (occurrence: None)
  Receive Date: 20110524
  Receipt Date: 20110524
  Transmission Date: 20111010
  Serious: Yes (Other)
  Sender: FDA-Public Use
  Company Number: None

PATIENT
  Age: 74 Year
  Sex: Female
  Weight: 62 kg

DRUGS (34)
  1. HYDROCORTISONE [Concomitant]
  2. NITROGLYCERIN [Concomitant]
  3. FONDAPARINUX SODIUM [Suspect]
     Indication: THROMBOSIS PROPHYLAXIS
     Dosage: 2.5MG Q24H SQ
     Route: 058
     Dates: start: 20110207, end: 20110214
  4. POTASSIUM CHLORIDE [Concomitant]
  5. FENTANYL [Concomitant]
  6. ARTIFICIAL TEARS [Concomitant]
  7. ACETAZOLAMIDE [Concomitant]
  8. ACETAMINOPHEN [Concomitant]
  9. MORPHINE [Concomitant]
  10. AMBIEN [Concomitant]
  11. HYDRALAZINE HCL [Concomitant]
  12. HYDROCODONE BITARTRATE AND ACETAMINOPHEN [Concomitant]
  13. LORAZEPAM [Concomitant]
  14. MEROPENEM [Concomitant]
  15. METRONIDAZOLE [Concomitant]
  16. MIDAZOLAM [Concomitant]
  17. AVANDIA [Concomitant]
  18. INSULIN DRIP [Concomitant]
  19. FUROSEMIDE [Concomitant]
  20. PIPERACILLIN AND TAZOBACTAM [Concomitant]
  21. ONDANSETRON [Concomitant]
  22. GUAIFENESIN [Concomitant]
  23. PENTAMIDINE ISETHIONATE [Concomitant]
  24. ADVAIR DISKUS 100/50 [Concomitant]
  25. SIMVASTATIN [Concomitant]
  26. PHENYLEPHRINE HCL [Concomitant]
  27. NS [Concomitant]
  28. AZTREONEM [Concomitant]
  29. PULMICORT NEBULIZER [Concomitant]
  30. ALBUMIN (HUMAN) [Concomitant]
  31. DOCUSATE [Concomitant]
  32. VANCOMYCIN [Concomitant]
  33. DOCUSATE [Concomitant]
  34. BROVANA [Concomitant]

REACTIONS (2)
  - PLATELET COUNT DECREASED [None]
  - SEPTIC SHOCK [None]
